FAERS Safety Report 4421697-6 (Version None)
Quarter: 2004Q3

REPORT INFORMATION
  Report Type: 
  Country: None (occurrence: None)
  Receive Date: 20040804
  Receipt Date: 20040722
  Transmission Date: 20050211
  Serious: Yes (Other)
  Sender: FDA-Public Use
  Company Number: S04-USA-04362-01

PATIENT
  Age: 66 Year
  Sex: Female

DRUGS (7)
  1. LEVOTHROID [Suspect]
     Indication: HYPOTHYROIDISM
     Dosage: 150 MCG QD PO
     Route: 048
     Dates: start: 20021101, end: 20040719
  2. LEVOTHROID [Suspect]
     Indication: HYPOTHYROIDISM
     Dosage: 137 MCG QD PO
     Route: 048
     Dates: start: 20040720, end: 20040722
  3. TAMOXIFEN CITRATE [Concomitant]
  4. PRAVACHOL [Concomitant]
  5. VIOXX [Concomitant]
  6. AMITRIPTYLINE HCL [Concomitant]
  7. ENALAPRIL MALEATE [Concomitant]

REACTIONS (15)
  - ASTHENIA [None]
  - BLOOD CHLORIDE INCREASED [None]
  - BLOOD GLUCOSE INCREASED [None]
  - BLOOD THYROID STIMULATING HORMONE DECREASED [None]
  - BURNING SENSATION [None]
  - DIZZINESS [None]
  - FATIGUE [None]
  - GRANULOCYTE COUNT INCREASED [None]
  - LOSS OF CONSCIOUSNESS [None]
  - LYMPHOCYTE COUNT DECREASED [None]
  - NAUSEA [None]
  - PALPITATIONS [None]
  - PARAESTHESIA [None]
  - SWELLING FACE [None]
  - WHITE BLOOD CELL COUNT INCREASED [None]
